FAERS Safety Report 16804139 (Version 1)
Quarter: 2019Q3

REPORT INFORMATION
  Report Type: Spontaneous
  Country: JP (occurrence: JP)
  Receive Date: 20190913
  Receipt Date: 20190913
  Transmission Date: 20191005
  Serious: Yes (Hospitalization, Other)
  Sender: FDA-Public Use
  Company Number: JP-INDOCO-000051

PATIENT
  Age: 89 Year
  Sex: Male
  Weight: 43 kg

DRUGS (8)
  1. TELMISARTAN. [Concomitant]
     Active Substance: TELMISARTAN
     Indication: HYPERTENSION
  2. FAMOTIDINE. [Concomitant]
     Active Substance: FAMOTIDINE
     Dosage: EVENING
  3. PIOGLITAZONE/PIOGLITAZONE HYDROCHLORIDE [Concomitant]
     Indication: TYPE 2 DIABETES MELLITUS
  4. BAYASPIRIN [Concomitant]
     Active Substance: ASPIRIN
     Dosage: MORNING
  5. CILOSTAZOL. [Concomitant]
     Active Substance: CILOSTAZOL
  6. NICORANDIL [Concomitant]
     Active Substance: NICORANDIL
     Dosage: MORNING AND EVENING
  7. GLIMEPIRIDE. [Suspect]
     Active Substance: GLIMEPIRIDE
     Indication: TYPE 2 DIABETES MELLITUS
  8. ATORVASTATIN [Concomitant]
     Active Substance: ATORVASTATIN
     Indication: DYSLIPIDAEMIA

REACTIONS (1)
  - Hypoglycaemic coma [Recovered/Resolved]
